FAERS Safety Report 5084295-X (Version None)
Quarter: 2006Q3

REPORT INFORMATION
  Report Type: 
  Country: None (occurrence: None)
  Receive Date: 20060821
  Receipt Date: 20060809
  Transmission Date: 20061208
  Serious: Yes (Hospitalization)
  Sender: FDA-Public Use
  Company Number: FR-AMGEN-UK189530

PATIENT
  Sex: Male
  Weight: 72 kg

DRUGS (5)
  1. ARANESP [Suspect]
     Indication: RENAL FAILURE CHRONIC
     Route: 058
  2. SECTRAL [Suspect]
     Route: 048
  3. TRIATEC [Suspect]
     Route: 048
     Dates: start: 20060101
  4. ZOMETA [Suspect]
     Route: 065
     Dates: start: 20021224, end: 20050701
  5. CORTANCYL [Concomitant]

REACTIONS (4)
  - HYPERKALAEMIA [None]
  - MALAISE [None]
  - OSTEITIS [None]
  - OSTEONECROSIS [None]
